FAERS Safety Report 4786038-3 (Version None)
Quarter: 2005Q3

REPORT INFORMATION
  Report Type: 
  Country: None (occurrence: None)
  Receive Date: 20050930
  Receipt Date: 20050930
  Transmission Date: 20060218
  Serious: Yes (Hospitalization)
  Sender: FDA-Public Use
  Company Number: None

PATIENT
  Age: 64 Year
  Sex: Male
  Weight: 80.2867 kg

DRUGS (23)
  1. MEGACE [Suspect]
     Indication: WEIGHT DECREASED
     Dosage: 20ML OD ORAL
     Route: 048
     Dates: start: 20050915, end: 20050920
  2. TAXOL [Concomitant]
  3. CARBOPLATIN [Concomitant]
  4. GEMCITABINE [Concomitant]
  5. ZOFRAN [Concomitant]
  6. DEXAMETHASONE [Concomitant]
  7. CIMETIDINE [Concomitant]
  8. BENADRYL [Concomitant]
  9. GCSF [Concomitant]
  10. GEMCITABINE [Concomitant]
  11. ARANESP [Concomitant]
  12. ZOFRAN [Concomitant]
  13. DEXAMETHASONE [Concomitant]
  14. ARANESP [Concomitant]
  15. METOPROLOL [Concomitant]
  16. PLAVIX [Concomitant]
  17. ALTACE [Concomitant]
  18. LIPITOR [Concomitant]
  19. VIT. C [Concomitant]
  20. HYDROCODONE [Concomitant]
  21. VIT. B6 [Concomitant]
  22. KETOROLAC TROMETHAMINE [Concomitant]
  23. OXYCODONE HCL [Concomitant]

REACTIONS (5)
  - BODY TEMPERATURE INCREASED [None]
  - CATHETER RELATED COMPLICATION [None]
  - CATHETER RELATED INFECTION [None]
  - SHOULDER PAIN [None]
  - STAPHYLOCOCCAL INFECTION [None]
